FAERS Safety Report 22634724 (Version 4)
Quarter: 2023Q4

REPORT INFORMATION
  Report Type: Report from Study
  Country: US (occurrence: US)
  Receive Date: 20230623
  Receipt Date: 20231120
  Transmission Date: 20240110
  Serious: Yes (Other)
  Sender: FDA-Public Use
  Company Number: US-ABBVIE-5301698

PATIENT
  Sex: Male

DRUGS (1)
  1. IMBRUVICA [Suspect]
     Active Substance: IBRUTINIB
     Indication: Chronic lymphocytic leukaemia
     Dosage: FORM STRENGTH: 420 MILLIGRAM?LAST ADMIN DATE: 09/2023
     Route: 048
     Dates: start: 20230616

REACTIONS (5)
  - Chronic lymphocytic leukaemia [Unknown]
  - Anaemia [Unknown]
  - Chronic kidney disease [Unknown]
  - Platelet count decreased [Unknown]
  - White blood cell count increased [Unknown]

NARRATIVE: CASE EVENT DATE: 20230101
